FAERS Safety Report 25995777 (Version 2)
Quarter: 2025Q4

REPORT INFORMATION
  Report Type: Report from Study
  Country: US (occurrence: US)
  Receive Date: 20251104
  Receipt Date: 20251128
  Transmission Date: 20260118
  Serious: Yes (Other)
  Sender: ABBVIE
  Company Number: US-ABBVIE-6526951

PATIENT
  Age: 24 Year
  Sex: Male

DRUGS (1)
  1. RINVOQ [Suspect]
     Active Substance: UPADACITINIB
     Indication: Crohn^s disease
     Dosage: LAST ADMIN DATE 2025
     Route: 048
     Dates: start: 20250429

REACTIONS (3)
  - Ostomy bag placement [Recovering/Resolving]
  - Colectomy [Recovering/Resolving]
  - Product residue present [Recovering/Resolving]

NARRATIVE: CASE EVENT DATE: 20250101
